FAERS Safety Report 25993904 (Version 1)
Quarter: 2025Q4

REPORT INFORMATION
  Report Type: Report from Study
  Country: EU (occurrence: EU)
  Receive Date: 20251104
  Receipt Date: 20251104
  Transmission Date: 20260118
  Serious: Yes (Death, Life-Threatening, Other)
  Sender: AUROBINDO
  Company Number: EU-AUROBINDO-AUR-APL-2025-055146

PATIENT
  Sex: Male
  Weight: 2.46 kg

DRUGS (2)
  1. CARBOPLATIN [Suspect]
     Active Substance: CARBOPLATIN
     Indication: Chemotherapy
     Dosage: 6.6MG/KG DAYS 1-3
     Route: 065
  2. ETOPOSIDE [Suspect]
     Active Substance: ETOPOSIDE
     Indication: Chemotherapy
     Dosage: 5MG/KG DAYS 1-3
     Route: 065

REACTIONS (8)
  - Haematotoxicity [Fatal]
  - Multiple organ dysfunction syndrome [Fatal]
  - Sepsis [Fatal]
  - Hypoxia [Fatal]
  - Tumour lysis syndrome [Unknown]
  - Congenital aplasia [Unknown]
  - Septic shock [Unknown]
  - Acute kidney injury [Unknown]
